FAERS Safety Report 23314013 (Version 2)
Quarter: 2023Q4

REPORT INFORMATION
  Report Type: Report from Study
  Country: US (occurrence: US)
  Receive Date: 20231219
  Receipt Date: 20231229
  Transmission Date: 20240110
  Serious: Yes (Death, Hospitalization, Other)
  Sender: FDA-Public Use
  Company Number: US-BIOVITRUM-2023-US-013178

PATIENT
  Age: 82 Year
  Sex: Male

DRUGS (3)
  1. KINERET [Suspect]
     Active Substance: ANAKINRA
     Indication: Product used for unknown indication
     Dosage: 100MG AS ORDERED
     Route: 058
  2. KINERET [Suspect]
     Active Substance: ANAKINRA
     Dosage: 100MG QF
     Route: 058
  3. KINERET [Suspect]
     Active Substance: ANAKINRA
     Dosage: UNKNOWN

REACTIONS (7)
  - Chest pain [Unknown]
  - Infection [Unknown]
  - Thrombosis [Unknown]
  - Haematuria [Unknown]
  - Adverse drug reaction [Unknown]
  - Cerebrovascular accident [Unknown]
  - Death [Fatal]
